FAERS Safety Report 4431232-4 (Version None)
Quarter: 2004Q3

REPORT INFORMATION
  Report Type: 
  Country: None (occurrence: None)
  Receive Date: 20040818
  Receipt Date: 20040805
  Transmission Date: 20050211
  Serious: Yes (Life-Threatening, Hospitalization, Other)
  Sender: FDA-Public Use
  Company Number: 2004045648

PATIENT
  Age: 62 Year
  Sex: Male
  Weight: 78 kg

DRUGS (2)
  1. DIFLUCAN [Suspect]
     Indication: SYSTEMIC CANDIDA
     Dosage: 200 MG (1 IN 1 D), INTRAVENOUS
     Route: 042
     Dates: start: 20040626, end: 20040702
  2. MEROPENEM TRIHYDRATE (MEROPENEM TRIHYDRATE) [Concomitant]

REACTIONS (3)
  - ALANINE AMINOTRANSFERASE INCREASED [None]
  - ASPARTATE AMINOTRANSFERASE INCREASED [None]
  - INTERSTITIAL LUNG DISEASE [None]
